FAERS Safety Report 19512478 (Version 2)
Quarter: 2021Q3

REPORT INFORMATION
  Report Type: Spontaneous
  Country: HU (occurrence: HU)
  Receive Date: 20210709
  Receipt Date: 20210811
  Transmission Date: 20211014
  Serious: Yes (Other)
  Sender: FDA-Public Use
  Company Number: HU-MYLANLABS-2021M1040554

PATIENT
  Age: 11 Year
  Sex: Male

DRUGS (3)
  1. ADALIMUMAB [Suspect]
     Active Substance: ADALIMUMAB
     Indication: CROHN^S DISEASE
     Dosage: UNK
     Route: 065
  2. INFLIXIMAB [Suspect]
     Active Substance: INFLIXIMAB
     Indication: RASH PUSTULAR
  3. ADALIMUMAB [Suspect]
     Active Substance: ADALIMUMAB
     Indication: RASH PUSTULAR

REACTIONS (7)
  - Rash pustular [Recovering/Resolving]
  - Conjunctival ulcer [Unknown]
  - Pyrexia [Unknown]
  - Crohn^s disease [Recovering/Resolving]
  - Off label use [Unknown]
  - Skin mass [Unknown]
  - Drug ineffective for unapproved indication [Unknown]
